FAERS Safety Report 17811124 (Version 1)
Quarter: 2020Q2

REPORT INFORMATION
  Report Type: Spontaneous
  Country: CN (occurrence: CN)
  Receive Date: 20200521
  Receipt Date: 20200521
  Transmission Date: 20200714
  Serious: Yes (Other)
  Sender: FDA-Public Use
  Company Number: CN-BRISTOL-MYERS SQUIBB COMPANY-BMS-2020-039091

PATIENT
  Age: 68 Year
  Sex: Female

DRUGS (4)
  1. TRIAMCINOLONE ACETONIDE. [Suspect]
     Active Substance: TRIAMCINOLONE ACETONIDE
     Indication: VISION BLURRED
     Route: 065
  2. PREDNISOLONE ACETATE. [Suspect]
     Active Substance: PREDNISOLONE ACETATE
     Indication: VISION BLURRED
     Route: 065
  3. TRIAMCINOLONE ACETONIDE. [Suspect]
     Active Substance: TRIAMCINOLONE ACETONIDE
     Indication: PHOTOPHOBIA
     Dosage: 4 MILLIGRAM
     Route: 057
  4. PREDNISOLONE ACETATE. [Suspect]
     Active Substance: PREDNISOLONE ACETATE
     Indication: PHOTOPHOBIA
     Dosage: UNK, Q4H
     Route: 061

REACTIONS (4)
  - Retinal detachment [Unknown]
  - Optic atrophy [Unknown]
  - Intentional product use issue [Unknown]
  - Endophthalmitis [Unknown]
